FAERS Safety Report 15019874 (Version 2)
Quarter: 2018Q3

REPORT INFORMATION
  Report Type: Report from Study
  Country: BR (occurrence: BR)
  Receive Date: 20180618
  Receipt Date: 20180920
  Transmission Date: 20181010
  Serious: Yes (Hospitalization, Other)
  Sender: FDA-Public Use
  Company Number: BR-BIOGEN-2018BI00595345

PATIENT
  Age: 68 Year
  Sex: Female

DRUGS (1)
  1. AVONEX [Suspect]
     Active Substance: INTERFERON BETA-1A
     Indication: SECONDARY PROGRESSIVE MULTIPLE SCLEROSIS
     Route: 030
     Dates: start: 20090710, end: 201807

REACTIONS (7)
  - Gait disturbance [Unknown]
  - Klebsiella infection [Not Recovered/Not Resolved]
  - Fall [Recovered/Resolved]
  - Off label use [Unknown]
  - Urinary retention [Unknown]
  - Thrombosis [Not Recovered/Not Resolved]
  - Muscle spasticity [Unknown]

NARRATIVE: CASE EVENT DATE: 201807
